FAERS Safety Report 5662220-8 (Version None)
Quarter: 2008Q1

REPORT INFORMATION
  Report Type: 
  Country: None (occurrence: None)
  Receive Date: 20080312
  Receipt Date: 20080303
  Transmission Date: 20080703
  Serious: Yes (Hospitalization, Other)
  Sender: FDA-Public Use
  Company Number: US-PFIZER INC-2006103936

PATIENT
  Sex: Male
  Weight: 99.8 kg

DRUGS (5)
  1. CELEBREX [Suspect]
     Indication: PAIN
  2. VIOXX [Suspect]
     Indication: PAIN
     Route: 048
     Dates: start: 19990601, end: 20000801
  3. ASPIRIN [Concomitant]
     Indication: MYOCARDIAL INFARCTION
     Dosage: DAILY DOSE:81MG
  4. ASPIRIN [Concomitant]
     Indication: CEREBROVASCULAR ACCIDENT
  5. NORCO [Concomitant]
     Indication: PAIN
     Dates: start: 19990101

REACTIONS (1)
  - MYOCARDIAL INFARCTION [None]
